FAERS Safety Report 4645265-6 (Version None)
Quarter: 2005Q2

REPORT INFORMATION
  Report Type: 
  Country: None (occurrence: None)
  Receive Date: 20050331
  Receipt Date: 20050225
  Transmission Date: 20051028
  Serious: No
  Sender: FDA-Public Use
  Company Number: 05P-163-0292085-00

PATIENT
  Age: 41 Year
  Sex: Female
  Weight: 79.3795 kg

DRUGS (8)
  1. HUMIRA [Suspect]
     Indication: RHEUMATOID ARTHRITIS
     Dosage: 40 MG, 1 IN 1 WK, SUBCUTANEOUS
     Route: 058
     Dates: start: 20030101
  2. SULFASALAZINE [Concomitant]
  3. PROPRANOLOL [Concomitant]
  4. OXYPROZIN [Concomitant]
  5. LEXAPRO [Concomitant]
  6. TRAMADOL HCL [Concomitant]
  7. NEFAZODON [Concomitant]
  8. CYCLOBENZAPRINE [Concomitant]

REACTIONS (1)
  - VAGINAL MYCOSIS [None]
